FAERS Safety Report 24939389 (Version 4)
Quarter: 2025Q2

REPORT INFORMATION
  Report Type: Spontaneous
  Country: US (occurrence: US)
  Receive Date: 20250206
  Receipt Date: 20250618
  Transmission Date: 20250717
  Serious: No
  Sender: ROCHE
  Company Number: US-ROCHE-10000199098

PATIENT
  Age: 56 Year
  Sex: Female
  Weight: 108.86 kg

DRUGS (1)
  1. XOLAIR [Suspect]
     Active Substance: OMALIZUMAB
     Indication: Chronic spontaneous urticaria
     Route: 065
     Dates: start: 20231127, end: 20241216

REACTIONS (6)
  - Dysarthria [Recovered/Resolved]
  - Obesity [Unknown]
  - Hypothyroidism [Unknown]
  - Bone lesion [Unknown]
  - Arteriosclerosis [Unknown]
  - Urticaria [Unknown]

NARRATIVE: CASE EVENT DATE: 20250122
